FAERS Safety Report 14685672 (Version 7)
Quarter: 2018Q2

REPORT INFORMATION
  Report Type: Report from Study
  Country: US (occurrence: US)
  Receive Date: 20180327
  Receipt Date: 20180604
  Transmission Date: 20180711
  Serious: Yes (Hospitalization)
  Sender: FDA-Public Use
  Company Number: US-PFIZER INC-2018118338

PATIENT
  Age: 10 Year
  Sex: Male
  Weight: 37.2 kg

DRUGS (17)
  1. SULFAMETHOXAZOLE -TRIMETHOPRIM [Concomitant]
     Indication: PROPHYLAXIS
     Dosage: 1 TAB, BID MONDAY AND TUESDAY
     Route: 048
     Dates: start: 20180217
  2. OXYCODONE [Concomitant]
     Active Substance: OXYCODONE
     Indication: PAIN
     Dosage: 2.5 MG, Q6HRS PRN
     Route: 048
     Dates: start: 20180310
  3. DOXORUBICIN HCL [Suspect]
     Active Substance: DOXORUBICIN HYDROCHLORIDE
     Indication: HODGKIN^S DISEASE
     Dosage: 25 MG/M2/DOSE, CYCLE = 21 DAYS, IV BOLUS OVER 1-5 MIN OR BY INTERMITTENT INFUSION OVER 1-15 MIN
     Route: 040
     Dates: start: 20180215
  4. ETOPOPHOS [Suspect]
     Active Substance: ETOPOSIDE PHOSPHATE
     Indication: HODGKIN^S DISEASE
     Dosage: 480 MG, CYCLIC: X 3 DAYS EVERY 3 WEEKS X 5 COURSES
     Route: 042
     Dates: start: 20180308
  5. DIPHENHYDRAMINE. [Concomitant]
     Active Substance: DIPHENHYDRAMINE
     Indication: NAUSEA
     Dosage: 25 MG, Q6HRS PRN
     Route: 048
     Dates: start: 20180310
  6. DIPHENHYDRAMINE. [Concomitant]
     Active Substance: DIPHENHYDRAMINE
     Indication: VOMITING
  7. PROMETHAZINE [Concomitant]
     Active Substance: PROMETHAZINE\PROMETHAZINE HYDROCHLORIDE
     Indication: VOMITING
  8. ACETAMINOPHEN. [Concomitant]
     Active Substance: ACETAMINOPHEN
     Indication: PAIN
     Dosage: 500 MG, Q6HRS PRN
     Route: 048
     Dates: start: 20180310
  9. VP-16 [Suspect]
     Active Substance: ETOPOSIDE
     Indication: HODGKIN^S DISEASE
     Dosage: 125 MG/M2/DOSE, CYCLE = 21 DAYS, IV OVER 60-120 MIN ON DAYS 1-3
     Route: 042
     Dates: start: 20180215
  10. ATIVAN [Concomitant]
     Active Substance: LORAZEPAM
     Indication: NAUSEA
     Dosage: 0.25 ML, TID PRN
     Route: 048
     Dates: start: 20180312
  11. PROMETHAZINE [Concomitant]
     Active Substance: PROMETHAZINE\PROMETHAZINE HYDROCHLORIDE
     Indication: NAUSEA
     Dosage: 12.5 MG, Q6HRS PRN
     Route: 048
     Dates: start: 20180310
  12. RANITIDINE. [Concomitant]
     Active Substance: RANITIDINE
     Dosage: 75 MG, BID
     Route: 048
     Dates: start: 20180310
  13. VINCRISTINE SULFATE. [Suspect]
     Active Substance: VINCRISTINE SULFATE
     Indication: HODGKIN^S DISEASE
     Dosage: 1.4 MG/M2 (MAX DOSE 2.8 MG) IV PUSH OVER 1 MIN OR INFUSION ON DAY 8
     Route: 042
     Dates: start: 20180222
  14. CYCLOPHOSPHAMIDE. [Suspect]
     Active Substance: CYCLOPHOSPHAMIDE
     Indication: HODGKIN^S DISEASE
     Dosage: 600 MG/M2/DOSE, CYCLE = 21 DAYS, IV OVER 30-60 MIN ON DAYS 1-2
     Route: 042
     Dates: start: 20180215
  15. PREDNISONE. [Suspect]
     Active Substance: PREDNISONE
     Indication: HODGKIN^S DISEASE
     Dosage: 20 MG/M2/DOSE, CYCLE = 21 DAYS, PO BID ON DAYS 1-7
     Route: 048
     Dates: start: 20180215
  16. BRENTUXIMAB VEDOTIN RECOMBINANT [Suspect]
     Active Substance: BRENTUXIMAB VEDOTIN
     Indication: HODGKIN^S DISEASE
     Dosage: 1.8 MG/KG/DOSE (MAX DOSE IS 180 MG), CYCLE = 21 DAYS, IV OVER 30 MIN ON DAY 1
     Route: 042
     Dates: start: 20180215
  17. ONDANSETRON [Concomitant]
     Active Substance: ONDANSETRON
     Indication: NAUSEA
     Dosage: 1.5 TABS, Q6HRS PRN
     Route: 048
     Dates: start: 20180310

REACTIONS (1)
  - Hypotension [Recovered/Resolved]

NARRATIVE: CASE EVENT DATE: 20180312
